FAERS Safety Report 18138396 (Version 1)
Quarter: 2020Q3

REPORT INFORMATION
  Report Type: Spontaneous
  Country: JP (occurrence: JP)
  Receive Date: 20200812
  Receipt Date: 20200812
  Transmission Date: 20201103
  Serious: Yes (Other)
  Sender: FDA-Public Use
  Company Number: JP-GLAXOSMITHKLINE-JP2020JPN152698

PATIENT
  Age: 7 Decade
  Sex: Male

DRUGS (1)
  1. NUCALA [Suspect]
     Active Substance: MEPOLIZUMAB
     Dosage: 100 MG EVERY 4 WEEKS
     Route: 058

REACTIONS (1)
  - Breast cancer male [Not Recovered/Not Resolved]
